FAERS Safety Report 9645209 (Version 2)
Quarter: 2014Q1

REPORT INFORMATION
  Report Type: Spontaneous
  Country: GB (occurrence: GB)
  Receive Date: 20131025
  Receipt Date: 20140130
  Transmission Date: 20141002
  Serious: Yes (Other)
  Sender: FDA-Public Use
  Company Number: GB-ASTELLAS-2013EU008897

PATIENT
  Sex: Female

DRUGS (1)
  1. BETMIGA [Suspect]
     Indication: HYPERTONIC BLADDER
     Dosage: 50 MG/DAY, UNKNOWN/D
     Route: 048
     Dates: start: 20130801, end: 20130828

REACTIONS (1)
  - Ventricular extrasystoles [Recovered/Resolved]
